FAERS Safety Report 20506285 (Version 1)
Quarter: 2022Q1

REPORT INFORMATION
  Report Type: Spontaneous
  Country: US (occurrence: None)
  Receive Date: 20220222
  Receipt Date: 20220222
  Transmission Date: 20220423
  Serious: Yes (Hospitalization)
  Sender: FDA-Public Use
  Company Number: None

PATIENT
  Age: 82 Year
  Sex: Female

DRUGS (13)
  1. SOTROVIMAB [Suspect]
     Active Substance: SOTROVIMAB
     Indication: COVID-19
     Dosage: FREQUENCY : ONCE;?
     Route: 042
     Dates: start: 20220207, end: 20220207
  2. ALPRAZolam (Xanax) 0.25 mg tablet (C-IV) [Concomitant]
  3. aspirin 81 mg tablet [Concomitant]
  4. atorvastatin (LIPITOR) 40 mg tablet [Concomitant]
  5. calcium carbonate-vitamin D3 250 mg-3.125 mcg (125 unit) tablet [Concomitant]
  6. cholecalciferol (VITAMIN D3) 1,000 unit (25 mcg) tablet [Concomitant]
  7. estrogens, conjugated, (PREMARIN) 0.625 mg tablet [Concomitant]
  8. levothyroxine (SYNTHROID) 100 mcg tablet [Concomitant]
  9. meclizine (ANTIVERT) 25 mg tablet PRN [Concomitant]
  10. metoprolol tartrate (LOPRESSOR) 50 mg tablet [Concomitant]
  11. multivitamin (THERAGRAN) tablet [Concomitant]
  12. omega-3 acid ethyl esters (LOVAZA) 1 gram capsule [Concomitant]
  13. triamterene-HCTZ (MAXZIDE-25) 37.5-25 mg per tablet [Concomitant]

REACTIONS (6)
  - Hypoxia [None]
  - Atrial fibrillation [None]
  - Dyspnoea [None]
  - Asthenia [None]
  - Oxygen saturation decreased [None]
  - Cough [None]

NARRATIVE: CASE EVENT DATE: 20220209
